FAERS Safety Report 6026255-8 (Version None)
Quarter: 2008Q4

REPORT INFORMATION
  Report Type: 
  Country: None (occurrence: None)
  Receive Date: 20081230
  Receipt Date: 20081222
  Transmission Date: 20090506
  Serious: Yes (Hospitalization)
  Sender: FDA-Public Use
  Company Number: 100#08#2008-06267

PATIENT
  Age: 28 Year
  Sex: Female

DRUGS (3)
  1. CARBAMAZEPINE [Suspect]
     Indication: BIPOLAR DISORDER
  2. CLONAZEPAM [Suspect]
     Indication: BIPOLAR DISORDER
  3. CHLORPROTHIXENE (CHLORPROTHIXENE) [Suspect]
     Indication: BIPOLAR DISORDER

REACTIONS (4)
  - BLOOD CREATINE PHOSPHOKINASE INCREASED [None]
  - DRUG RASH WITH EOSINOPHILIA AND SYSTEMIC SYMPTOMS [None]
  - GAMMA-GLUTAMYLTRANSFERASE INCREASED [None]
  - SPLENOMEGALY [None]
